FAERS Safety Report 24329118 (Version 1)
Quarter: 2024Q3

REPORT INFORMATION
  Report Type: Spontaneous
  Country: GB (occurrence: GB)
  Receive Date: 20240917
  Receipt Date: 20240917
  Transmission Date: 20241017
  Serious: Yes (Other)
  Sender: BOEHRINGER INGELHEIM
  Company Number: None

PATIENT
  Sex: Female

DRUGS (1)
  1. OFEV [Suspect]
     Active Substance: NINTEDANIB
     Indication: Product used for unknown indication
     Dates: start: 20240913

REACTIONS (4)
  - Depressed mood [Unknown]
  - Syncope [Unknown]
  - Oscillopsia [Unknown]
  - Emotional poverty [Unknown]

NARRATIVE: CASE EVENT DATE: 20240913
